FAERS Safety Report 25539391 (Version 1)
Quarter: 2025Q3

REPORT INFORMATION
  Report Type: Spontaneous
  Country: EU (occurrence: EU)
  Receive Date: 20250710
  Receipt Date: 20250710
  Transmission Date: 20251021
  Serious: Yes (Hospitalization)
  Sender: MYLAN
  Company Number: None

PATIENT
  Age: 17 Year
  Sex: Female

DRUGS (16)
  1. TRAMADOL [Suspect]
     Active Substance: TRAMADOL
     Indication: Product used for unknown indication
     Dosage: 150 MILLIGRAM, QD (UP TO 600 MG/DAY)
     Dates: start: 2021
  2. TRAMADOL [Suspect]
     Active Substance: TRAMADOL
     Dosage: 150 MILLIGRAM, QD (UP TO 600 MG/DAY)
     Route: 048
     Dates: start: 2021
  3. TRAMADOL [Suspect]
     Active Substance: TRAMADOL
     Dosage: 150 MILLIGRAM, QD (UP TO 600 MG/DAY)
     Route: 048
     Dates: start: 2021
  4. TRAMADOL [Suspect]
     Active Substance: TRAMADOL
     Dosage: 150 MILLIGRAM, QD (UP TO 600 MG/DAY)
     Dates: start: 2021
  5. VALIUM [Suspect]
     Active Substance: DIAZEPAM
     Indication: Product used for unknown indication
     Dosage: 40 MILLIGRAM, QD (UP TO 160 MG/DAY)
     Dates: start: 2023
  6. VALIUM [Suspect]
     Active Substance: DIAZEPAM
     Dosage: 40 MILLIGRAM, QD (UP TO 160 MG/DAY)
     Route: 048
     Dates: start: 2023
  7. VALIUM [Suspect]
     Active Substance: DIAZEPAM
     Dosage: 40 MILLIGRAM, QD (UP TO 160 MG/DAY)
     Route: 048
     Dates: start: 2023
  8. VALIUM [Suspect]
     Active Substance: DIAZEPAM
     Dosage: 40 MILLIGRAM, QD (UP TO 160 MG/DAY)
     Dates: start: 2023
  9. PREGABALIN [Suspect]
     Active Substance: PREGABALIN
     Indication: Product used for unknown indication
     Dosage: 200 MILLIGRAM, QD (UP TO 1800 MG/DAY)
     Dates: start: 2024
  10. PREGABALIN [Suspect]
     Active Substance: PREGABALIN
     Dosage: 200 MILLIGRAM, QD (UP TO 1800 MG/DAY)
     Route: 048
     Dates: start: 2024
  11. PREGABALIN [Suspect]
     Active Substance: PREGABALIN
     Dosage: 200 MILLIGRAM, QD (UP TO 1800 MG/DAY)
     Route: 048
     Dates: start: 2024
  12. PREGABALIN [Suspect]
     Active Substance: PREGABALIN
     Dosage: 200 MILLIGRAM, QD (UP TO 1800 MG/DAY)
     Dates: start: 2024
  13. CANNABIS SATIVA SUBSP. INDICA TOP [Suspect]
     Active Substance: CANNABIS SATIVA SUBSP. INDICA TOP
     Indication: Product used for unknown indication
     Dosage: 8 JOINTS/DAY QD
     Dates: start: 2018
  14. CANNABIS SATIVA SUBSP. INDICA TOP [Suspect]
     Active Substance: CANNABIS SATIVA SUBSP. INDICA TOP
     Dosage: 8 JOINTS/DAY QD
     Route: 055
     Dates: start: 2018
  15. CANNABIS SATIVA SUBSP. INDICA TOP [Suspect]
     Active Substance: CANNABIS SATIVA SUBSP. INDICA TOP
     Dosage: 8 JOINTS/DAY QD
     Route: 055
     Dates: start: 2018
  16. CANNABIS SATIVA SUBSP. INDICA TOP [Suspect]
     Active Substance: CANNABIS SATIVA SUBSP. INDICA TOP
     Dosage: 8 JOINTS/DAY QD
     Dates: start: 2018

REACTIONS (2)
  - Drug use disorder [Not Recovered/Not Resolved]
  - Substance use disorder [Not Recovered/Not Resolved]

NARRATIVE: CASE EVENT DATE: 20180101
